FAERS Safety Report 15472554 (Version 1)
Quarter: 2018Q4

REPORT INFORMATION
  Report Type: Spontaneous
  Country: JP (occurrence: JP)
  Receive Date: 20181008
  Receipt Date: 20181008
  Transmission Date: 20190205
  Serious: Yes (Hospitalization)
  Sender: FDA-Public Use
  Company Number: JP-TEVA-2017-JP-004552J

PATIENT
  Age: 67 Year
  Sex: Female

DRUGS (1)
  1. FAMOTIDINE OD TABLET 20MG ^TEVA^ [Suspect]
     Active Substance: FAMOTIDINE
     Indication: PRODUCT USED FOR UNKNOWN INDICATION
     Route: 065
     Dates: start: 201609, end: 201610

REACTIONS (1)
  - Acute kidney injury [Unknown]
